FAERS Safety Report 6528109-7 (Version None)
Quarter: 2010Q1

REPORT INFORMATION
  Report Type: 
  Country: None (occurrence: None)
  Receive Date: 20100105
  Receipt Date: 20100105
  Transmission Date: 20100710
  Serious: Yes (Hospitalization)
  Sender: FDA-Public Use
  Company Number: None

PATIENT
  Sex: Female
  Weight: 112 kg

DRUGS (2)
  1. MEMANTINE HCL [Suspect]
     Dosage: 15 MG
  2. DEXAMETHASONE [Concomitant]

REACTIONS (7)
  - CONFUSIONAL STATE [None]
  - DIABETES MELLITUS [None]
  - FEELING ABNORMAL [None]
  - HYPOTHYROIDISM [None]
  - MYOPATHY [None]
  - PSYCHOTIC DISORDER [None]
  - THINKING ABNORMAL [None]
